FAERS Safety Report 21098860 (Version 1)
Quarter: 2022Q3

REPORT INFORMATION
  Report Type: Spontaneous
  Country: US (occurrence: None)
  Receive Date: 20220718
  Receipt Date: 20220718
  Transmission Date: 20221027
  Serious: Yes (Other)
  Sender: FDA-Public Use
  Company Number: None

PATIENT
  Age: 84 Year
  Sex: Male

DRUGS (1)
  1. PRAZOSIN [Suspect]
     Active Substance: PRAZOSIN
     Dosage: FREQUENCY : DAILY;?
     Route: 048
     Dates: start: 20220615

REACTIONS (2)
  - Urinary retention [None]
  - Product substitution issue [None]

NARRATIVE: CASE EVENT DATE: 20220617
